FAERS Safety Report 10040257 (Version 1)
Quarter: 2014Q1

REPORT INFORMATION
  Report Type: Spontaneous
  Country: FR (occurrence: FR)
  Receive Date: 20140327
  Receipt Date: 20140327
  Transmission Date: 20141002
  Serious: Yes (Other)
  Sender: FDA-Public Use
  Company Number: FR-ROCHE-1372264

PATIENT
  Age: 89 Year
  Sex: Female

DRUGS (8)
  1. LUCENTIS [Suspect]
     Indication: AGE-RELATED MACULAR DEGENERATION
     Route: 050
     Dates: start: 20110603
  2. LUCENTIS [Suspect]
     Route: 050
     Dates: start: 20140128
  3. LETROZOLE [Suspect]
     Indication: PRODUCT USED FOR UNKNOWN INDICATION
     Route: 065
  4. LEVOTHYROX [Concomitant]
     Route: 065
     Dates: start: 200911
  5. PRETERAX [Concomitant]
     Route: 065
     Dates: start: 2008
  6. CRESTOR [Concomitant]
     Route: 065
     Dates: start: 2008
  7. KARDEGIC [Concomitant]
     Route: 065
     Dates: start: 2008
  8. VENLAFAXINE [Concomitant]
     Route: 065
     Dates: start: 201310

REACTIONS (4)
  - Cognitive disorder [Recovered/Resolved]
  - Asthenia [Recovered/Resolved]
  - Fatigue [Unknown]
  - Memory impairment [Unknown]
